FAERS Safety Report 6848394-1 (Version None)
Quarter: 2010Q3

REPORT INFORMATION
  Report Type: 
  Country: None (occurrence: None)
  Receive Date: 20100716
  Receipt Date: 20100706
  Transmission Date: 20110219
  Serious: Yes (Death, Congenital Anomaly)
  Sender: FDA-Public Use
  Company Number: IT-JNJFOC-20100703856

PATIENT

DRUGS (2)
  1. HALOPERIDOL [Suspect]
     Indication: DRUG EXPOSURE DURING PREGNANCY
     Route: 064
  2. UNKNOWN MEDICATION [Suspect]
     Indication: DRUG EXPOSURE DURING PREGNANCY
     Route: 064

REACTIONS (3)
  - INFECTIOUS MONONUCLEOSIS [None]
  - LIMB MALFORMATION [None]
  - SUBDURAL HAEMORRHAGE [None]
